APPROVED DRUG PRODUCT: PERMETHRIN
Active Ingredient: PERMETHRIN
Strength: 5%
Dosage Form/Route: CREAM;TOPICAL
Application: A074806 | Product #001 | TE Code: AB
Applicant: ACTAVIS LABORATORIES INC AN INDIRECT WHOLLY OWNED SUB OF TEVA PHARMACEUTICALS USA INC
Approved: Jan 23, 1998 | RLD: No | RS: No | Type: RX